FAERS Safety Report 12527001 (Version 3)
Quarter: 2016Q3

REPORT INFORMATION
  Report Type: Spontaneous
  Country: US (occurrence: US)
  Receive Date: 20160705
  Receipt Date: 20160706
  Transmission Date: 20161109
  Serious: Yes (Other)
  Sender: FDA-Public Use
  Company Number: US-GLAXOSMITHKLINE-US2016087299

PATIENT
  Age: 52 Year
  Sex: Male

DRUGS (6)
  1. ROPINIROLE HYDROCHLORIDE. [Suspect]
     Active Substance: ROPINIROLE HYDROCHLORIDE
     Indication: PARKINSON^S DISEASE
     Dosage: 4 MG, QD
     Route: 048
  2. MAXZIDE [Concomitant]
     Active Substance: HYDROCHLOROTHIAZIDE\TRIAMTERENE
  3. TEGRETOL [Concomitant]
     Active Substance: CARBAMAZEPINE
  4. AZILECT [Concomitant]
     Active Substance: RASAGILINE MESYLATE
  5. ROPINIROLE HYDROCHLORIDE PROLONGED-RELEASE TABLET [Suspect]
     Active Substance: ROPINIROLE HYDROCHLORIDE
     Indication: PARKINSON^S DISEASE
     Dosage: 16 MG, QD
  6. AMANTADINE [Concomitant]
     Active Substance: AMANTADINE

REACTIONS (3)
  - Renal surgery [Recovering/Resolving]
  - Renal neoplasm [Recovering/Resolving]
  - Surgery [Unknown]

NARRATIVE: CASE EVENT DATE: 20160614
